FAERS Safety Report 10554682 (Version 5)
Quarter: 2015Q1

REPORT INFORMATION
  Report Type: Spontaneous
  Country: JP (occurrence: JP)
  Receive Date: 20141030
  Receipt Date: 20150113
  Transmission Date: 20150720
  Serious: Yes (Death, Life-Threatening, Hospitalization, Other)
  Sender: FDA-Public Use
  Company Number: JP-PFIZER INC-2014298570

PATIENT
  Age: 84 Year
  Sex: Female
  Weight: 31.9 kg

DRUGS (14)
  1. SYMMETREL [Concomitant]
     Active Substance: AMANTADINE HYDROCHLORIDE
     Dosage: 50 MG, 2X/DAY
     Route: 050
     Dates: start: 20140801, end: 20141024
  2. TAKEPRON OD [Concomitant]
     Active Substance: LANSOPRAZOLE
     Dosage: 15 MG, 1X/DAY
     Route: 050
     Dates: start: 20140626, end: 20141024
  3. LYRICA [Suspect]
     Active Substance: PREGABALIN
     Indication: NEURALGIA
     Dosage: 50 MG, 2X/DAY
     Route: 050
     Dates: start: 20141022, end: 20141024
  4. FIRSTCIN [Concomitant]
     Active Substance: CEFOZOPRAN HYDROCHLORIDE
     Dosage: 1 DF, 2X/DAY
     Route: 042
     Dates: start: 20141017, end: 20141022
  5. FLUMARIN [Concomitant]
     Active Substance: FLOMOXEF SODIUM
     Dosage: 1 DF, 2X/DAY
     Route: 042
     Dates: start: 20141023, end: 20141024
  6. URSO [Concomitant]
     Active Substance: URSODIOL
     Dosage: 200 MG, 2X/DAY
     Route: 050
     Dates: start: 20140626, end: 20141024
  7. METHYCOBAL [Concomitant]
     Active Substance: METHYLCOBALAMIN
     Indication: HERPES ZOSTER
     Dosage: 500 ?G, 3X/DAY
     Route: 050
     Dates: start: 20141020, end: 20141024
  8. VALTREX [Concomitant]
     Active Substance: VALACYCLOVIR HYDROCHLORIDE
     Indication: HERPES ZOSTER
     Dosage: 1000 MG, 3X/DAY
     Route: 050
     Dates: start: 20141017, end: 20141023
  9. CALONAL [Concomitant]
     Active Substance: ACETAMINOPHEN
     Indication: HERPES ZOSTER
     Dosage: 400 MG, 3X/DAY
     Route: 050
     Dates: start: 20141020, end: 20141024
  10. CALFINA [Concomitant]
     Active Substance: ALFACALCIDOL
     Dosage: 0.5 ?G, 1X/DAY
     Route: 050
     Dates: start: 20140626, end: 20141024
  11. BIO-THREE [Concomitant]
     Active Substance: HERBALS
     Dosage: 2 DF, 3X/DAY
     Route: 050
     Dates: start: 20140828, end: 20141024
  12. SODIUM CHLORIDE. [Concomitant]
     Active Substance: SODIUM CHLORIDE
     Dosage: 3 G, 2X/DAY
     Route: 050
     Dates: start: 20140712, end: 20141024
  13. GASLON N [Concomitant]
     Dosage: 2 MG, 2X/DAY
     Route: 050
     Dates: start: 20140626, end: 20141024
  14. GASMOTIN [Concomitant]
     Active Substance: MOSAPRIDE CITRATE
     Dosage: 5 MG, 3X/DAY
     Route: 050
     Dates: start: 20140815, end: 20141024

REACTIONS (12)
  - Intentional product misuse [Unknown]
  - Platelet count decreased [Unknown]
  - Blood chloride increased [Unknown]
  - Blood pressure increased [Unknown]
  - Haemoglobin decreased [Unknown]
  - Respiratory failure [Fatal]
  - Blood urea increased [Unknown]
  - Pyrexia [Unknown]
  - Pneumonia aspiration [Fatal]
  - Vomiting [Fatal]
  - Blood sodium increased [Unknown]
  - Nausea [Unknown]

NARRATIVE: CASE EVENT DATE: 20141022
